FAERS Safety Report 13940452 (Version 1)
Quarter: 2017Q3

REPORT INFORMATION
  Report Type: Spontaneous
  Country: FR (occurrence: FR)
  Receive Date: 20170906
  Receipt Date: 20170906
  Transmission Date: 20171127
  Serious: Yes (Other)
  Sender: FDA-Public Use
  Company Number: FR-TEVA-801012ROM

PATIENT
  Sex: Female

DRUGS (1)
  1. BISOPROLOL 2.5 MG [Suspect]
     Active Substance: BISOPROLOL

REACTIONS (2)
  - Multiple sclerosis relapse [Recovered/Resolved]
  - Paraesthesia [Not Recovered/Not Resolved]

NARRATIVE: CASE EVENT DATE: 2014
